FAERS Safety Report 6365055-6 (Version None)
Quarter: 2009Q3

REPORT INFORMATION
  Report Type: 
  Country: None (occurrence: None)
  Receive Date: 20090919
  Receipt Date: 20090729
  Transmission Date: 20100115
  Serious: No
  Sender: FDA-Public Use
  Company Number: US-ABBOTT-09P-163-0589205-00

PATIENT
  Sex: Female
  Weight: 108.96 kg

DRUGS (9)
  1. HUMIRA [Suspect]
     Indication: RHEUMATOID ARTHRITIS
     Route: 058
  2. METHOTREXATE [Suspect]
     Indication: RHEUMATOID ARTHRITIS
     Dosage: MTX 15 YRS AGO - 7 PILLS, 2.5 MG EACH PILLS - ONCE WEEKLY AND PREVIOUSLY 50MG ONCE WEEKLY
     Route: 048
  3. METHOTREXATE [Suspect]
  4. UNKNOWN PAIN MEDICATION [Concomitant]
     Indication: DRUG USE FOR UNKNOWN INDICATION
  5. LANTUS [Concomitant]
     Indication: TYPE 2 DIABETES MELLITUS
  6. METFORMIN HCL [Concomitant]
     Indication: DRUG USE FOR UNKNOWN INDICATION
  7. PAXIL [Concomitant]
     Indication: DRUG USE FOR UNKNOWN INDICATION
  8. LISINOPRIL [Concomitant]
     Indication: DRUG USE FOR UNKNOWN INDICATION
  9. SIMVASTATIN [Concomitant]
     Indication: DRUG USE FOR UNKNOWN INDICATION

REACTIONS (6)
  - FACIAL PAIN [None]
  - INFLUENZA LIKE ILLNESS [None]
  - POSTNASAL DRIP [None]
  - RHINORRHOEA [None]
  - TENDERNESS [None]
  - VOMITING [None]
